FAERS Safety Report 6402037-X (Version None)
Quarter: 2009Q4

REPORT INFORMATION
  Report Type: 
  Country: None (occurrence: None)
  Receive Date: 20091015
  Receipt Date: 20090507
  Transmission Date: 20100525
  Serious: Yes (Other)
  Sender: FDA-Public Use
  Company Number: BR-PFIZER INC-2009209631

PATIENT
  Age: 51 Year

DRUGS (2)
  1. DOSTINEX [Suspect]
     Indication: BLOOD PROLACTIN INCREASED
     Dosage: 0.5 MG, WEEKLY
     Route: 048
     Dates: start: 20080101
  2. DOSTINEX [Suspect]
     Indication: ADENOMA BENIGN
     Dosage: 05 MG, EVERY TWENTY DAYS
     Route: 048
     Dates: start: 20080101

REACTIONS (5)
  - BLOOD PROLACTIN DECREASED [None]
  - BLOOD TRIGLYCERIDES INCREASED [None]
  - BREAST DISORDER [None]
  - BREAST INJURY [None]
  - RASH MACULAR [None]
